FAERS Safety Report 8553575-5 (Version None)
Quarter: 2012Q3

REPORT INFORMATION
  Report Type: 
  Country: None (occurrence: None)
  Receive Date: 20120731
  Receipt Date: 20120725
  Transmission Date: 20120928
  Serious: No
  Sender: FDA-Public Use
  Company Number: US-PFIZER INC-2012181272

PATIENT
  Sex: Female
  Weight: 86.168 kg

DRUGS (3)
  1. LYRICA [Suspect]
     Indication: NERVOUS SYSTEM DISORDER
     Dosage: 150 MG,DAILY
     Route: 048
     Dates: start: 20120301, end: 20120701
  2. LYRICA [Suspect]
     Indication: SPINAL OSTEOARTHRITIS
     Dosage: 150 MG/DAY
     Route: 048
     Dates: start: 20120725
  3. SKELAXIN [Suspect]
     Indication: SPINAL OSTEOARTHRITIS
     Dosage: 800 MG, DAILY
     Dates: start: 20120301

REACTIONS (2)
  - ALOPECIA [None]
  - MALAISE [None]
